FAERS Safety Report 5231198-3 (Version None)
Quarter: 2007Q1

REPORT INFORMATION
  Report Type: 
  Country: None (occurrence: None)
  Receive Date: 20070206
  Receipt Date: 20070202
  Transmission Date: 20070707
  Serious: Yes (Hospitalization, Disabling)
  Sender: FDA-Public Use
  Company Number: 2007AP00772

PATIENT
  Age: 20830 Day
  Sex: Female
  Weight: 87 kg

DRUGS (1)
  1. IRESSA [Suspect]
     Indication: NON-SMALL CELL LUNG CANCER
     Route: 048
     Dates: start: 20051020, end: 20051107

REACTIONS (3)
  - IMPETIGO [None]
  - INFECTION [None]
  - RASH [None]
